FAERS Safety Report 7687194-X (Version None)
Quarter: 2011Q3

REPORT INFORMATION
  Report Type: 
  Country: None (occurrence: None)
  Receive Date: 20110816
  Receipt Date: 20110810
  Transmission Date: 20111222
  Serious: Yes (Life-Threatening, Hospitalization, Other)
  Sender: FDA-Public Use
  Company Number: CHPA2011US10682

PATIENT
  Sex: Male

DRUGS (5)
  1. EXCEDRIN (MIGRAINE) [Suspect]
     Dosage: 1 DF, QD
     Route: 048
  2. EXCEDRIN (MIGRAINE) [Suspect]
     Indication: PAIN
     Dosage: 12 DF, QD
     Route: 048
  3. EXCEDRIN (MIGRAINE) [Suspect]
     Dosage: 8 DF, QD
     Route: 048
  4. ST. JOHN'S WORT [Concomitant]
     Dosage: UNK, UNK
  5. EXCEDRIN TENSION HEADACHE [Concomitant]
     Indication: HEADACHE
     Dosage: 1 DF, PRN
     Route: 048
     Dates: start: 20060101

REACTIONS (35)
  - GUN SHOT WOUND [None]
  - ROAD TRAFFIC ACCIDENT [None]
  - HIP SURGERY [None]
  - DEPRESSION [None]
  - PNEUMOTHORAX [None]
  - DRUG ABUSE [None]
  - ROTATOR CUFF SYNDROME [None]
  - EXOSTOSIS [None]
  - URETHRAL DISORDER [None]
  - CRYING [None]
  - HEADACHE [None]
  - PRESYNCOPE [None]
  - PAIN [None]
  - LYMPHADENOPATHY [None]
  - AURA [None]
  - PYREXIA [None]
  - THERAPEUTIC RESPONSE UNEXPECTED [None]
  - RESPIRATORY FAILURE [None]
  - NON-CARDIAC CHEST PAIN [None]
  - DIZZINESS [None]
  - INCORRECT DRUG ADMINISTRATION DURATION [None]
  - BURSITIS [None]
  - COMA [None]
  - PEPTIC ULCER [None]
  - DISLOCATION OF VERTEBRA [None]
  - PLANTAR FASCIITIS [None]
  - MUSCULOSKELETAL DISORDER [None]
  - ARTHRITIS [None]
  - BURNING SENSATION [None]
  - MALAISE [None]
  - OFF LABEL USE [None]
  - OVERDOSE [None]
  - HIP ARTHROPLASTY [None]
  - NECK DEFORMITY [None]
  - BACK DISORDER [None]
